FAERS Safety Report 6166776-0 (Version None)
Quarter: 2009Q2

REPORT INFORMATION
  Report Type: 
  Country: None (occurrence: None)
  Receive Date: 20090424
  Receipt Date: 20090424
  Transmission Date: 20091009
  Serious: Yes (Hospitalization)
  Sender: FDA-Public Use
  Company Number: A0780219A

PATIENT
  Age: 54 Year
  Sex: Female
  Weight: 104 kg

DRUGS (6)
  1. ALLI [Suspect]
     Route: 048
     Dates: start: 20090405
  2. WELLBUTRIN [Concomitant]
     Indication: BIPOLAR DISORDER
  3. SEROQUEL [Concomitant]
     Indication: BIPOLAR DISORDER
  4. COUMADIN [Concomitant]
  5. HEPARIN [Concomitant]
  6. IV ANTIBIOTICS [Concomitant]

REACTIONS (11)
  - ABDOMINAL PAIN [None]
  - DIARRHOEA [None]
  - EATING DISORDER [None]
  - FEELING ABNORMAL [None]
  - MALAISE [None]
  - MIGRAINE [None]
  - OEDEMA PERIPHERAL [None]
  - PAIN IN EXTREMITY [None]
  - THROMBOSIS [None]
  - TREATMENT NONCOMPLIANCE [None]
  - VOMITING [None]
